FAERS Safety Report 4489454-2 (Version None)
Quarter: 2004Q4

REPORT INFORMATION
  Report Type: 
  Country: None (occurrence: None)
  Receive Date: 20041028
  Receipt Date: 20041015
  Transmission Date: 20050328
  Serious: Yes (Hospitalization, Other)
  Sender: FDA-Public Use
  Company Number: HQWYE628607OCT04

PATIENT
  Age: 61 Year
  Sex: Female

DRUGS (5)
  1. NEORAL, CONTROL FOR SIROLIMUS (CYCLOSPORINE, CONTROL FOR SIROLIMUS, CA [Suspect]
     Indication: PROPHYLAXIS AGAINST TRANSPLANT REJECTION
     Dosage: 125 MG 1X PER 1 DAY ORAL
     Route: 048
     Dates: start: 20010501
  2. CELLCEPT [Concomitant]
  3. DELTASONE [Concomitant]
  4. OMEPRAZOLE [Concomitant]
  5. MADOPAR          (BENSERAZIDE HYDROCHLORIDE/LEVODOPA) [Concomitant]

REACTIONS (5)
  - BACK DISORDER [None]
  - BACK PAIN [None]
  - BLOOD CREATININE INCREASED [None]
  - HAEMATOCRIT DECREASED [None]
  - HAEMOGLOBIN DECREASED [None]
